FAERS Safety Report 7919780-3 (Version None)
Quarter: 2011Q4

REPORT INFORMATION
  Report Type: 
  Country: None (occurrence: None)
  Receive Date: 20111117
  Receipt Date: 20111117
  Transmission Date: 20120403
  Serious: Yes (Death, Hospitalization)
  Sender: FDA-Public Use
  Company Number: None

PATIENT
  Sex: Female
  Weight: 63.502 kg

DRUGS (1)
  1. ACETAMINOPHEN [Suspect]
     Indication: MIGRAINE
     Dosage: 1000MG
     Route: 048

REACTIONS (3)
  - MEDICATION ERROR [None]
  - MULTI-ORGAN FAILURE [None]
  - ACCIDENTAL OVERDOSE [None]
